FAERS Safety Report 9194668 (Version 1)
Quarter: 2013Q1

REPORT INFORMATION
  Report Type: Spontaneous
  Country: US (occurrence: US)
  Receive Date: 20130328
  Receipt Date: 20130328
  Transmission Date: 20140127
  Serious: No
  Sender: FDA-Public Use
  Company Number: US-ALLERGAN-1209380US

PATIENT
  Age: 60 Year
  Sex: Female

DRUGS (5)
  1. LATISSE 0.03% [Suspect]
     Indication: GROWTH OF EYELASHES
     Dosage: UNK UNK, QHS
     Route: 061
  2. GLIPIZIDE [Concomitant]
     Indication: DIABETES MELLITUS
  3. METFORMIN [Concomitant]
     Indication: DIABETES MELLITUS
  4. VISINE                             /00256502/ [Concomitant]
     Indication: PRODUCT USED FOR UNKNOWN INDICATION
  5. SYSANTE [Concomitant]
     Indication: PRODUCT USED FOR UNKNOWN INDICATION

REACTIONS (3)
  - Incorrect dose administered [Unknown]
  - Eyelash hyperpigmentation [Not Recovered/Not Resolved]
  - Blepharal pigmentation [Not Recovered/Not Resolved]
